FAERS Safety Report 5159886-8 (Version None)
Quarter: 2006Q4

REPORT INFORMATION
  Report Type: 
  Country: None (occurrence: None)
  Receive Date: 20061129
  Receipt Date: 20060331
  Transmission Date: 20070319
  Serious: No
  Sender: FDA-Public Use
  Company Number: 2006/01261

PATIENT
  Age: 59 Year
  Sex: Male

DRUGS (3)
  1. BUPROPION HCL [Suspect]
     Indication: DEPRESSION
     Dosage: 100MG PER DAY
     Route: 048
     Dates: start: 20050901
  2. WELLBUTRIN [Suspect]
     Indication: DEPRESSION
     Dates: start: 20000101, end: 20050801
  3. BLOOD PRESSURE MEDICATION [Concomitant]
     Indication: HYPERTENSION

REACTIONS (2)
  - EMOTIONAL DISORDER [None]
  - REPRODUCTIVE TRACT DISORDER [None]
